FAERS Safety Report 25854247 (Version 1)
Quarter: 2025Q3

REPORT INFORMATION
  Report Type: Other
  Country: US (occurrence: US)
  Receive Date: 20250926
  Receipt Date: 20250926
  Transmission Date: 20251021
  Serious: Yes (Other)
  Sender: HLS THERAPEUTICS
  Company Number: US-HLS-202500332

PATIENT
  Age: 68 Year
  Sex: Female

DRUGS (1)
  1. CLOZAPINE [Suspect]
     Active Substance: CLOZAPINE
     Indication: Neuropsychological symptoms
     Route: 065

REACTIONS (6)
  - Parkinsonism [Unknown]
  - Therapeutic response decreased [Unknown]
  - Cognitive disorder [Unknown]
  - Dementia [Unknown]
  - Suicidal ideation [Recovered/Resolved]
  - Hallucination, visual [Unknown]
